FAERS Safety Report 5849744-5 (Version None)
Quarter: 2008Q3

REPORT INFORMATION
  Report Type: 
  Country: None (occurrence: None)
  Receive Date: 20080731
  Receipt Date: 20080402
  Transmission Date: 20090109
  Serious: No
  Sender: FDA-Public Use
  Company Number: US200804001010

PATIENT
  Age: 74 Year
  Sex: Female

DRUGS (2)
  1. BYETTA [Suspect]
     Indication: TYPE 2 DIABETES MELLITUS
     Dosage: 5 UG, 2/D, SUBCUTANEOUS
     Route: 058
     Dates: start: 20080201, end: 20080301
  2. AMARYL [Concomitant]

REACTIONS (6)
  - ANGER [None]
  - FEELING ABNORMAL [None]
  - INFLUENZA LIKE ILLNESS [None]
  - IRRITABILITY [None]
  - LETHARGY [None]
  - SOMNOLENCE [None]
